FAERS Safety Report 4530563-7 (Version None)
Quarter: 2004Q4

REPORT INFORMATION
  Report Type: 
  Country: None (occurrence: None)
  Receive Date: 20041216
  Receipt Date: 20041125
  Transmission Date: 20050328
  Serious: Yes (Death, Other)
  Sender: FDA-Public Use
  Company Number: JP_041105260

PATIENT
  Age: 27 Year
  Sex: Male

DRUGS (1)
  1. VANCOMYCIN [Suspect]
     Dates: start: 20020901, end: 20021101

REACTIONS (5)
  - BONE MARROW DEPRESSION [None]
  - INFECTION [None]
  - OCULOMUCOCUTANEOUS SYNDROME [None]
  - PANCYTOPENIA [None]
  - STEVENS-JOHNSON SYNDROME [None]
